FAERS Safety Report 22343081 (Version 1)
Quarter: 2023Q2

REPORT INFORMATION
  Report Type: Spontaneous
  Country: IT (occurrence: IT)
  Receive Date: 20230519
  Receipt Date: 20230519
  Transmission Date: 20230722
  Serious: Yes (Hospitalization)
  Sender: FDA-Public Use
  Company Number: None

PATIENT
  Age: 23 Year
  Sex: Female

DRUGS (9)
  1. CLONAZEPAM [Suspect]
     Active Substance: CLONAZEPAM
     Indication: Epilepsy
     Dosage: TID?DAILY DOSE: 45 DROP
     Route: 048
     Dates: start: 20220501, end: 20230505
  2. RISPERDAL [Suspect]
     Active Substance: RISPERIDONE
     Indication: Schizophrenia
     Dosage: TID?DAILY DOSE: 3 MILLIGRAM
     Route: 048
     Dates: start: 20220501, end: 20230505
  3. LAMICTAL [Suspect]
     Active Substance: LAMOTRIGINE
     Indication: Epilepsy
     Dosage: BID?DAILY DOSE: 200 MILLIGRAM
     Route: 048
     Dates: start: 20220501, end: 20230505
  4. PHENOBARBITAL [Suspect]
     Active Substance: PHENOBARBITAL
     Indication: Epilepsy
     Dosage: DAILY DOSE: 100 MILLIGRAM
     Route: 048
     Dates: start: 20220501, end: 20230505
  5. VALPROATE SODIUM [Suspect]
     Active Substance: VALPROATE SODIUM
     Indication: Epilepsy
     Dosage: BID?DAILY DOSE: 1500 MILLIGRAM
     Route: 048
     Dates: start: 20220501, end: 20230505
  6. VALPROATE SODIUM [Suspect]
     Active Substance: VALPROATE SODIUM
     Indication: Epilepsy
     Dosage: DAILY DOSE: 1000 MILLIGRAM
  7. OXCARBAZEPINE [Suspect]
     Active Substance: OXCARBAZEPINE
     Indication: Epilepsy
     Dosage: TID?DAILY DOSE: 1800 MILLIGRAM
     Route: 048
     Dates: start: 20220501, end: 20230505
  8. OXCARBAZEPINE [Suspect]
     Active Substance: OXCARBAZEPINE
     Indication: Epilepsy
     Dosage: DAILY DOSE: 1.5 GRAM
  9. BRIVARACETAM [Suspect]
     Active Substance: BRIVARACETAM
     Indication: Epilepsy
     Dosage: BID?DAILY DOSE: 100 MILLIGRAM
     Route: 048
     Dates: start: 20220501, end: 20230505

REACTIONS (3)
  - Hyponatraemia [Recovering/Resolving]
  - Nausea [Recovering/Resolving]
  - Vomiting [Recovering/Resolving]

NARRATIVE: CASE EVENT DATE: 20230505
